FAERS Safety Report 9685230 (Version 1)
Quarter: 2013Q4

REPORT INFORMATION
  Report Type: Report from Study
  Country: LB (occurrence: LB)
  Receive Date: 20131113
  Receipt Date: 20131113
  Transmission Date: 20140711
  Serious: Yes (Death)
  Sender: FDA-Public Use
  Company Number: LB-SA-2013SA114977

PATIENT
  Age: 72 Year
  Sex: Female

DRUGS (5)
  1. LANTUS SOLOSTAR [Suspect]
     Indication: DIABETES MELLITUS
     Dosage: DOSE:35 UNIT(S)
     Route: 058
     Dates: start: 201301
  2. AMARYL [Suspect]
     Indication: DIABETES MELLITUS
     Route: 048
  3. ASPIRIN [Concomitant]
     Route: 048
  4. DOXIUM [Concomitant]
     Route: 048
  5. EUTHYROX [Concomitant]
     Route: 048

REACTIONS (3)
  - Hip fracture [Fatal]
  - Embolism [Fatal]
  - General physical health deterioration [Fatal]
